FAERS Safety Report 4809063-2 (Version None)
Quarter: 2005Q4

REPORT INFORMATION
  Report Type: 
  Country: None (occurrence: None)
  Receive Date: 20051021
  Receipt Date: 20040720
  Transmission Date: 20060501
  Serious: Yes (Other)
  Sender: FDA-Public Use
  Company Number: GBS040715312

PATIENT
  Age: 29 Year
  Sex: Female

DRUGS (5)
  1. ZYPREXA [Suspect]
     Indication: PSYCHOTIC DISORDER
     Dosage: 15 MG DAY
     Dates: start: 20040427
  2. HALOPERIDOL [Concomitant]
  3. PAROXETINE HCL [Concomitant]
  4. PROCYCLIDINE HYDROCHLORIDE 2MG TAB [Concomitant]
  5. LORAZEPAN [Concomitant]

REACTIONS (3)
  - BLOOD COUNT ABNORMAL [None]
  - LEUKOPENIA [None]
  - NEUTROPENIA [None]
